FAERS Safety Report 6109171-2 (Version None)
Quarter: 2009Q1

REPORT INFORMATION
  Report Type: 
  Country: None (occurrence: None)
  Receive Date: 20090306
  Receipt Date: 20090306
  Transmission Date: 20090719
  Serious: Yes (Other)
  Sender: FDA-Public Use
  Company Number: None

PATIENT
  Age: 27 Year
  Sex: Male
  Weight: 61.2356 kg

DRUGS (1)
  1. DEPAKOTE [Suspect]
     Indication: CONVULSION
     Dosage: 2 AM 3 PM
     Dates: start: 20090228

REACTIONS (5)
  - ABDOMINAL DISCOMFORT [None]
  - ADVERSE DRUG REACTION [None]
  - CONVULSION [None]
  - NAUSEA [None]
  - VOMITING [None]
